FAERS Safety Report 6190895-6 (Version None)
Quarter: 2009Q2

REPORT INFORMATION
  Report Type: 
  Country: None (occurrence: None)
  Receive Date: 20090513
  Receipt Date: 20090428
  Transmission Date: 20091009
  Serious: Yes (Death)
  Sender: FDA-Public Use
  Company Number: 2009S1007445

PATIENT
  Age: 79 Year
  Sex: Female

DRUGS (12)
  1. CLARITHROMYCIN [Suspect]
     Indication: BRONCHITIS
     Dosage: 500 MG; TWICE A DAY; ORAL
     Route: 048
     Dates: start: 20081224, end: 20081231
  2. SIMVASTATIN [Suspect]
     Indication: MYOCARDIAL ISCHAEMIA
     Dosage: 80 MG; ; ORAL
     Route: 048
     Dates: start: 20050501, end: 20090113
  3. BISOPROLOL [Concomitant]
  4. FERROUS SULFATE TAB [Concomitant]
  5. FUROSEMIDE [Concomitant]
  6. GLYCERYL TRINITRATE [Concomitant]
  7. ISOTARD XL [Concomitant]
  8. NICORANDIL [Concomitant]
  9. OMEPRAZOLE [Concomitant]
  10. RAMIPRIL [Concomitant]
  11. WARFARIN SODIUM [Concomitant]
  12. ZOPICLONE [Concomitant]

REACTIONS (4)
  - CEREBROVASCULAR ACCIDENT [None]
  - DRUG INTERACTION [None]
  - MYOSITIS [None]
  - SYNCOPE [None]
